FAERS Safety Report 12491970 (Version 1)
Quarter: 2016Q2

REPORT INFORMATION
  Report Type: Spontaneous
  Country: US (occurrence: None)
  Receive Date: 20160622
  Receipt Date: 20160622
  Transmission Date: 20160815
  Serious: Yes (Disabling)
  Sender: FDA-Public Use
  Company Number: None

PATIENT
  Age: 52 Year
  Sex: Female
  Weight: 63.5 kg

DRUGS (1)
  1. TAMOXIFEN CITRATE ACTAVIS LABORATORIES [Suspect]
     Active Substance: TAMOXIFEN CITRATE
     Indication: BREAST CANCER
     Dosage: 30 TABLETS
     Route: 048
     Dates: start: 20160501, end: 20160517

REACTIONS (7)
  - Back pain [None]
  - Anger [None]
  - Mental impairment [None]
  - Confusional state [None]
  - Bone pain [None]
  - Disorientation [None]
  - Adnexa uteri pain [None]

NARRATIVE: CASE EVENT DATE: 20160517
